FAERS Safety Report 9668210 (Version 2)
Quarter: 2013Q4

REPORT INFORMATION
  Report Type: Spontaneous
  Country: RU (occurrence: RU)
  Receive Date: 20131104
  Receipt Date: 20131127
  Transmission Date: 20140711
  Serious: Yes (Hospitalization, Other)
  Sender: FDA-Public Use
  Company Number: RU-ABBVIE-13P-251-1162703-00

PATIENT
  Age: 24 Year
  Sex: Female

DRUGS (2)
  1. HUMIRA [Suspect]
     Indication: CROHN^S DISEASE
     Dates: start: 201211
  2. REMICADE [Suspect]
     Indication: CROHN^S DISEASE

REACTIONS (5)
  - Splenic granuloma [Recovered/Resolved]
  - Granuloma [Unknown]
  - Splenic abscess [Recovered/Resolved]
  - Tuberculosis [Unknown]
  - Spleen tuberculosis [Unknown]
